FAERS Safety Report 8025486-5 (Version None)
Quarter: 2011Q4

REPORT INFORMATION
  Report Type: 
  Country: None (occurrence: None)
  Receive Date: 20111130
  Receipt Date: 20110317
  Transmission Date: 20120403
  Serious: Yes (Other)
  Sender: FDA-Public Use
  Company Number: 2011001265

PATIENT
  Age: 52 Year
  Sex: Female

DRUGS (1)
  1. TRISENOX [Suspect]

REACTIONS (2)
  - ACCIDENTAL EXPOSURE [None]
  - CAPSULE PHYSICAL ISSUE [None]
